FAERS Safety Report 4420254-5 (Version None)
Quarter: 2004Q3

REPORT INFORMATION
  Report Type: 
  Country: None (occurrence: None)
  Receive Date: 20040809
  Receipt Date: 20040324
  Transmission Date: 20050211
  Serious: No
  Sender: FDA-Public Use
  Company Number: US-GLAXOSMITHKLINE-A0504457A

PATIENT
  Sex: Male

DRUGS (2)
  1. PAXIL [Suspect]
     Indication: ANXIETY
     Route: 048
  2. LOPRESSOR [Concomitant]

REACTIONS (3)
  - CARPAL TUNNEL SYNDROME [None]
  - NEUROPATHY PERIPHERAL [None]
  - RENAL FUNCTION TEST ABNORMAL [None]
